FAERS Safety Report 13973448 (Version 1)
Quarter: 2017Q3

REPORT INFORMATION
  Report Type: Spontaneous
  Country: US (occurrence: US)
  Receive Date: 20170830
  Receipt Date: 20170830
  Transmission Date: 20171128
  Serious: Yes (Hospitalization, Disabling, Other)
  Sender: FDA-Public Use
  Company Number: None

PATIENT
  Age: 67 Year
  Sex: Female
  Weight: 115.2 kg

DRUGS (12)
  1. SINGULAIR [Concomitant]
     Active Substance: MONTELUKAST SODIUM
  2. TYLENOL PM [Concomitant]
     Active Substance: ACETAMINOPHEN\DIPHENHYDRAMINE
  3. ORTHOVISC [Suspect]
     Active Substance: HYALURONIC ACID
     Indication: ARTHRALGIA
     Dosage: INJECTION TO KNEE
     Dates: start: 20170731, end: 20170822
  4. GALLIUM [Suspect]
     Active Substance: GALLIUM CITRATE GA-67
  5. PRILOSEC [Concomitant]
     Active Substance: OMEPRAZOLE MAGNESIUM
  6. BABY ASPIRIN [Concomitant]
     Active Substance: ASPIRIN
  7. PROAIR HFA [Concomitant]
     Active Substance: ALBUTEROL SULFATE
  8. ADVAIR HFA [Concomitant]
     Active Substance: FLUTICASONE PROPIONATE\SALMETEROL XINAFOATE
  9. LISINOPRIL. [Concomitant]
     Active Substance: LISINOPRIL
  10. MOBIC [Concomitant]
     Active Substance: MELOXICAM
  11. MOTIN [Concomitant]
  12. HYDOCHLOROTHIASIDE [Concomitant]

REACTIONS (26)
  - Diarrhoea [None]
  - Muscle spasms [None]
  - Gait disturbance [None]
  - Nasal congestion [None]
  - Chest discomfort [None]
  - Insomnia [None]
  - Ageusia [None]
  - Stress [None]
  - Malaise [None]
  - Blood pressure increased [None]
  - Respiratory distress [None]
  - Panic attack [None]
  - Decreased appetite [None]
  - Injection site pain [None]
  - Abdominal distension [None]
  - Thirst [None]
  - Logorrhoea [None]
  - Formication [None]
  - Weight decreased [None]
  - Mania [None]
  - Joint swelling [None]
  - Feeling abnormal [None]
  - Dysgeusia [None]
  - Inappropriate affect [None]
  - Abnormal behaviour [None]
  - Anger [None]

NARRATIVE: CASE EVENT DATE: 20170802
